FAERS Safety Report 10386050 (Version 1)
Quarter: 2014Q1

REPORT INFORMATION
  Report Type: Spontaneous
  Country: US (occurrence: None)
  Receive Date: 20140306
  Receipt Date: 20140306
  Transmission Date: 20141002
  Serious: Yes (Other)
  Sender: FDA-Public Use
  Company Number: 163-21880-13120326

PATIENT
  Age: 72 Year
  Sex: Female

DRUGS (4)
  1. REVLIMID [Suspect]
     Indication: MYELODYSPLASTIC SYNDROME
     Route: 048
     Dates: start: 201112
  2. CITALOPRAM (TABLETS) [Concomitant]
  3. ALPRAZOLAM (TABLETS) [Concomitant]
  4. LEVOTHYROXINE [Concomitant]

REACTIONS (4)
  - Neutropenia [None]
  - Myelodysplastic syndrome [None]
  - Disease progression [None]
  - Full blood count decreased [None]
